FAERS Safety Report 6769819-6 (Version None)
Quarter: 2010Q2

REPORT INFORMATION
  Report Type: 
  Country: None (occurrence: None)
  Receive Date: 20100615
  Receipt Date: 20100608
  Transmission Date: 20101027
  Serious: Yes (Other)
  Sender: FDA-Public Use
  Company Number: US-BAYER-201016450BCC

PATIENT
  Age: 73 Year
  Sex: Male

DRUGS (5)
  1. ASPIRIN [Suspect]
     Indication: DRUG USE FOR UNKNOWN INDICATION
     Route: 065
  2. PLAVIX [Suspect]
     Indication: CARDIAC DISORDER
     Dosage: TOTAL DAILY DOSE: 75 MG  UNIT DOSE: 75 MG
     Route: 048
     Dates: start: 20100101
  3. LIPITOR [Concomitant]
     Route: 065
  4. BETA BLOCKING AGENTS [Concomitant]
     Route: 065
  5. ACE INHIBITOR NOS [Concomitant]
     Route: 065

REACTIONS (3)
  - CONSTIPATION [None]
  - HAEMORRHAGE [None]
  - PLATELET COUNT DECREASED [None]
